FAERS Safety Report 12690277 (Version 1)
Quarter: 2016Q3

REPORT INFORMATION
  Report Type: Spontaneous
  Country: BR (occurrence: BR)
  Receive Date: 20160826
  Receipt Date: 20160826
  Transmission Date: 20161109
  Serious: Yes (Other)
  Sender: FDA-Public Use
  Company Number: BR-PFIZER INC-2016400006

PATIENT
  Sex: Female

DRUGS (2)
  1. PRISTIQ EXTENDED-RELEASE [Suspect]
     Active Substance: DESVENLAFAXINE SUCCINATE
     Dosage: 50 MG, 1X/DAY
  2. PRISTIQ EXTENDED-RELEASE [Suspect]
     Active Substance: DESVENLAFAXINE SUCCINATE
     Dosage: 100 MG, 1X/DAY

REACTIONS (23)
  - Tension [Unknown]
  - Neck pain [Recovered/Resolved]
  - Tremor [Unknown]
  - Chest discomfort [Recovered/Resolved]
  - Malaise [Recovered/Resolved]
  - Agitation [Recovered/Resolved]
  - Crying [Unknown]
  - Dyspnoea [Unknown]
  - Mydriasis [Not Recovered/Not Resolved]
  - Middle insomnia [Unknown]
  - Insomnia [Unknown]
  - Tachycardia [Recovered/Resolved]
  - Depression [Unknown]
  - Increased appetite [Unknown]
  - Condition aggravated [Unknown]
  - Headache [Not Recovered/Not Resolved]
  - Disorientation [Unknown]
  - Suicidal ideation [Unknown]
  - Anxiety [Not Recovered/Not Resolved]
  - Decreased appetite [Unknown]
  - Feeling abnormal [Recovered/Resolved]
  - Depressed mood [Unknown]
  - Irritability [Unknown]
